FAERS Safety Report 19930675 (Version 2)
Quarter: 2022Q1

REPORT INFORMATION
  Report Type: Spontaneous
  Country: DE (occurrence: DE)
  Receive Date: 20211007
  Receipt Date: 20220118
  Transmission Date: 20220423
  Serious: Yes (Death, Life-Threatening, Other)
  Sender: FDA-Public Use
  Company Number: None

PATIENT
  Age: 79 Year
  Sex: Female
  Weight: 88 kg

DRUGS (5)
  1. LINEZOLID [Suspect]
     Active Substance: LINEZOLID
     Indication: Wound infection
     Dosage: 1200 MILLIGRAM, QD
     Route: 048
     Dates: start: 20210529, end: 20210604
  2. AMIODARONE [Suspect]
     Active Substance: AMIODARONE
     Indication: Atrial fibrillation
     Dosage: 855 MILLIGRAM, QD (450MG IN 50 ML, 4 ML PRO STUNDE  08.06.2021: 15:00 UHR 10.06.2021: 10:00 UHR)
     Route: 041
     Dates: start: 20210608, end: 20210610
  3. MARCUMAR [Suspect]
     Active Substance: PHENPROCOUMON
     Indication: Anticoagulant therapy
     Dosage: 6 MILLIGRAM, QD
     Route: 048
     Dates: start: 20210605, end: 20210608
  4. MARCUMAR [Suspect]
     Active Substance: PHENPROCOUMON
     Indication: Atrial fibrillation
  5. MARCUMAR [Suspect]
     Active Substance: PHENPROCOUMON
     Indication: Heart valve replacement

REACTIONS (2)
  - Shock [Fatal]
  - Acute hepatic failure [Fatal]

NARRATIVE: CASE EVENT DATE: 20210601
